FAERS Safety Report 14256361 (Version 1)
Quarter: 2017Q4

REPORT INFORMATION
  Report Type: Spontaneous
  Country: US (occurrence: US)
  Receive Date: 20171206
  Receipt Date: 20171206
  Transmission Date: 20180321
  Serious: Yes (Death, Other)
  Sender: FDA-Public Use
  Company Number: US-MALLINCKRODT-T201704718

PATIENT
  Age: 88 Year
  Sex: Male
  Weight: 52 kg

DRUGS (1)
  1. FENTANYL TRANSDERMAL SYSTEM [Suspect]
     Active Substance: FENTANYL
     Indication: PAIN
     Dosage: 12 MCG/HR, EVERY 72 HOURS
     Route: 062
     Dates: start: 20171122

REACTIONS (4)
  - Death [Fatal]
  - Feeling abnormal [Unknown]
  - Cyanosis [Unknown]
  - Coma [Unknown]

NARRATIVE: CASE EVENT DATE: 20171126
